FAERS Safety Report 26128508 (Version 1)
Quarter: 2025Q4

REPORT INFORMATION
  Report Type: Spontaneous
  Country: US (occurrence: US)
  Receive Date: 20251207
  Receipt Date: 20251207
  Transmission Date: 20260118
  Serious: Yes (Other)
  Sender: JOHNSON AND JOHNSON
  Company Number: US-JNJFOC-20251204348

PATIENT
  Sex: Female

DRUGS (3)
  1. XARELTO [Suspect]
     Active Substance: RIVAROXABAN
     Indication: Thrombosis
     Route: 048
  2. LENVIMA [Suspect]
     Active Substance: LENVATINIB
     Indication: Neoplasm malignant
     Dosage: DAILY
     Route: 048
  3. DUPIXENT [Concomitant]
     Active Substance: DUPILUMAB
     Indication: Product used for unknown indication

REACTIONS (2)
  - Thrombosis [Unknown]
  - Drug ineffective [Unknown]
